FAERS Safety Report 10216580 (Version 1)
Quarter: 2014Q1

REPORT INFORMATION
  Report Type: Spontaneous
  Country: US (occurrence: None)
  Receive Date: 20140306
  Receipt Date: 20140306
  Transmission Date: 20141002
  Serious: Yes (Other)
  Sender: FDA-Public Use
  Company Number: 163-21880-13045043

PATIENT
  Age: 60 Year
  Sex: Female

DRUGS (9)
  1. REVLIMID (LENALIDOMIDE) (25 MILLIGRAM, CAPSULES) [Suspect]
     Indication: PLASMA CELL MYELOMA
     Route: 048
     Dates: start: 20130425
  2. DEXAMETHASONE (DEXAMETHASONE) [Concomitant]
  3. TOPROL (METOPROLOL SUCCINATE) [Concomitant]
  4. HYDRALAZINE (HYDRALAZINE) [Concomitant]
  5. SIMVASTATIN (SIMVASTATIN) [Concomitant]
  6. ASPIRIN (ACETYLSALICYLIC ACID) [Concomitant]
  7. OMEGA III (UNKNOWN) [Concomitant]
  8. COLACE (DOCUSATE SODIUM) [Concomitant]
  9. MULTIVITAMINS (MULTIVITAMINS) [Concomitant]

REACTIONS (3)
  - Rash [None]
  - Pruritus [None]
  - Swelling [None]
